FAERS Safety Report 6604735-1 (Version None)
Quarter: 2010Q1

REPORT INFORMATION
  Report Type: 
  Country: None (occurrence: None)
  Receive Date: 20100226
  Receipt Date: 20091116
  Transmission Date: 20100710
  Serious: No
  Sender: FDA-Public Use
  Company Number: US-BRISTOL-MYERS SQUIBB COMPANY-14863112

PATIENT
  Age: 3 Decade
  Sex: Male

DRUGS (2)
  1. ONGLYZA [Suspect]
     Route: 048
  2. JANUVIA [Concomitant]

REACTIONS (1)
  - CONSTIPATION [None]
